FAERS Safety Report 5833478-7 (Version None)
Quarter: 2008Q3

REPORT INFORMATION
  Report Type: 
  Country: None (occurrence: None)
  Receive Date: 20080805
  Receipt Date: 20080723
  Transmission Date: 20090109
  Serious: Yes (Other)
  Sender: FDA-Public Use
  Company Number: US-BAYER-200828967NA

PATIENT
  Sex: Female

DRUGS (1)
  1. MIRENA [Suspect]
     Indication: CONTRACEPTION
     Route: 015
     Dates: start: 20080123

REACTIONS (5)
  - ABDOMINAL PAIN LOWER [None]
  - DEVICE BREAKAGE [None]
  - IUCD COMPLICATION [None]
  - IUD MIGRATION [None]
  - PELVIC PAIN [None]
